FAERS Safety Report 5361041-3 (Version None)
Quarter: 2007Q2

REPORT INFORMATION
  Report Type: 
  Country: None (occurrence: None)
  Receive Date: 20070618
  Receipt Date: 20070606
  Transmission Date: 20071010
  Serious: Yes (Other)
  Sender: FDA-Public Use
  Company Number: HK-PFIZER INC-2007046939

PATIENT
  Sex: Female

DRUGS (2)
  1. LYRICA [Suspect]
     Indication: EPILEPSY
     Route: 048
     Dates: start: 20070101, end: 20070101
  2. ANTIEPILEPTICS [Concomitant]

REACTIONS (3)
  - MUSCLE SPASMS [None]
  - PSYCHOTIC DISORDER [None]
  - TONGUE BITING [None]
